FAERS Safety Report 22300607 (Version 2)
Quarter: 2023Q2

REPORT INFORMATION
  Report Type: Report from Study
  Country: US (occurrence: US)
  Receive Date: 20230509
  Receipt Date: 20230630
  Transmission Date: 20230722
  Serious: Yes (Other)
  Sender: FDA-Public Use
  Company Number: US-GILEAD-2023-0623194

PATIENT
  Sex: Male

DRUGS (1)
  1. SACITUZUMAB GOVITECAN-HZIY [Suspect]
     Active Substance: SACITUZUMAB GOVITECAN-HZIY
     Indication: Breast cancer
     Dosage: RECONSTITUTE AND INFUSE 720MG IV ONCE WEEKLY ON DAY 1 AND 8 OF A CONTINUOUS 21 DAY TREATMENT CYCLE
     Route: 042
     Dates: end: 20230221

REACTIONS (2)
  - Disease progression [Unknown]
  - Therapy change [Unknown]
